FAERS Safety Report 16535403 (Version 2)
Quarter: 2019Q3

REPORT INFORMATION
  Report Type: Spontaneous
  Country: US (occurrence: US)
  Receive Date: 20190705
  Receipt Date: 20190911
  Transmission Date: 20191004
  Serious: Yes (Other)
  Sender: FDA-Public Use
  Company Number: US-ASTRAZENECA-2019SE94640

PATIENT
  Age: 74 Year
  Sex: Female
  Weight: 79.4 kg

DRUGS (23)
  1. TRAMADOL. [Concomitant]
     Active Substance: TRAMADOL
     Indication: PAIN
  2. VERAPAMIL [Concomitant]
     Active Substance: VERAPAMIL HYDROCHLORIDE
  3. RANITIDINE. [Concomitant]
     Active Substance: RANITIDINE
  4. DIFLUCAN [Concomitant]
     Active Substance: FLUCONAZOLE
  5. LISINOPRIL. [Concomitant]
     Active Substance: LISINOPRIL
     Indication: BLOOD PRESSURE MEASUREMENT
  6. LORAZEPAM. [Concomitant]
     Active Substance: LORAZEPAM
     Indication: ANXIETY
  7. FLUCONAZOLE. [Concomitant]
     Active Substance: FLUCONAZOLE
  8. MULTIVITAMIN [Concomitant]
     Active Substance: VITAMINS
  9. AMILORIDE [Concomitant]
     Active Substance: AMILORIDE
  10. FLUCONAZOLE. [Concomitant]
     Active Substance: FLUCONAZOLE
  11. ASPIRIN. [Concomitant]
     Active Substance: ASPIRIN
  12. LOSARTAN. [Concomitant]
     Active Substance: LOSARTAN
     Indication: BLOOD PRESSURE MEASUREMENT
  13. CEFAZOLIN [Concomitant]
     Active Substance: CEFAZOLIN
  14. LEVOFLOXACIN. [Concomitant]
     Active Substance: LEVOFLOXACIN
  15. NITROGLYCERIN. [Concomitant]
     Active Substance: NITROGLYCERIN
  16. METRONIDAZOLE. [Concomitant]
     Active Substance: METRONIDAZOLE
  17. NEXIUM [Suspect]
     Active Substance: ESOMEPRAZOLE MAGNESIUM
     Indication: GASTROOESOPHAGEAL REFLUX DISEASE
     Route: 048
     Dates: start: 2005, end: 2015
  18. PRILOSEC [Suspect]
     Active Substance: OMEPRAZOLE MAGNESIUM
     Route: 048
     Dates: start: 2005, end: 2015
  19. PRAVASTATIN. [Concomitant]
     Active Substance: PRAVASTATIN
     Indication: BLOOD CHOLESTEROL
  20. FUROSEMIDE. [Concomitant]
     Active Substance: FUROSEMIDE
     Indication: POLYURIA
  21. HYDROCHLOROTHIAZIDE. [Concomitant]
     Active Substance: HYDROCHLOROTHIAZIDE
  22. NYSTATIN. [Concomitant]
     Active Substance: NYSTATIN
  23. AZITHROMYCIN ANHYDROUS. [Concomitant]
     Active Substance: AZITHROMYCIN ANHYDROUS

REACTIONS (3)
  - Chronic kidney disease [Not Recovered/Not Resolved]
  - End stage renal disease [Unknown]
  - Nephrogenic anaemia [Unknown]

NARRATIVE: CASE EVENT DATE: 2011
